FAERS Safety Report 8926472 (Version 3)
Quarter: 2013Q1

REPORT INFORMATION
  Report Type: Spontaneous
  Country: DE (occurrence: PL)
  Receive Date: 20121126
  Receipt Date: 20130228
  Transmission Date: 20140127
  Serious: Yes (Life-Threatening)
  Sender: FDA-Public Use
  Company Number: PL-FRI-1000040576

PATIENT
  Age: 89 Year
  Sex: Male

DRUGS (1)
  1. MEMANTINE [Suspect]
     Indication: DEMENTIA ALZHEIMER^S TYPE
     Dosage: 5 MG
     Route: 048
     Dates: start: 20121108, end: 20121108

REACTIONS (3)
  - Pulmonary oedema [Unknown]
  - Cardiomyopathy [Recovering/Resolving]
  - Blood pressure decreased [Recovering/Resolving]
